FAERS Safety Report 24570200 (Version 1)
Quarter: 2024Q4

REPORT INFORMATION
  Report Type: Spontaneous
  Country: US (occurrence: US)
  Receive Date: 20241031
  Receipt Date: 20241031
  Transmission Date: 20250115
  Serious: No
  Sender: MERCK
  Company Number: US-009507513-2410USA013407

PATIENT
  Age: 34 Year
  Sex: Female

DRUGS (2)
  1. CUBICIN [Suspect]
     Active Substance: DAPTOMYCIN
     Indication: Enterococcal infection
     Dosage: UNK
  2. LINEZOLID [Concomitant]
     Active Substance: LINEZOLID
     Indication: Enterococcal infection
     Dosage: UNK

REACTIONS (2)
  - Pathogen resistance [Unknown]
  - Off label use [Unknown]
